FAERS Safety Report 8074205-5 (Version None)
Quarter: 2012Q1

REPORT INFORMATION
  Report Type: 
  Country: None (occurrence: None)
  Receive Date: 20120126
  Receipt Date: 20120120
  Transmission Date: 20120608
  Serious: Yes (Other)
  Sender: FDA-Public Use
  Company Number: BR-PFIZER INC-2012018019

PATIENT
  Age: 59 Year
  Sex: Female

DRUGS (3)
  1. VASOGARD [Concomitant]
     Dosage: UNK
     Dates: start: 20100101
  2. LIPITOR [Suspect]
     Indication: BLOOD CHOLESTEROL
     Dosage: 20 MG, 1X/DAY
     Route: 048
     Dates: start: 20110120
  3. ASPIRIN [Concomitant]
     Dosage: UNK
     Dates: start: 20100101

REACTIONS (1)
  - THROMBOSIS [None]
